FAERS Safety Report 7880363-5 (Version None)
Quarter: 2011Q4

REPORT INFORMATION
  Report Type: 
  Country: None (occurrence: None)
  Receive Date: 20111101
  Receipt Date: 20111024
  Transmission Date: 20120403
  Serious: Yes (Other)
  Sender: FDA-Public Use
  Company Number: PHHY2011PL93797

PATIENT
  Age: 46 Year
  Sex: Male
  Weight: 85 kg

DRUGS (1)
  1. CEFAZOLIN [Suspect]
     Indication: PROPHYLAXIS
     Dosage: 2 G, UNK
     Route: 042
     Dates: start: 20110901, end: 20110901

REACTIONS (8)
  - SNEEZING [None]
  - LACRIMATION INCREASED [None]
  - TINNITUS [None]
  - HYPOAESTHESIA ORAL [None]
  - PRURITUS [None]
  - HYPOTENSION [None]
  - OEDEMA [None]
  - ERYTHEMA [None]
